FAERS Safety Report 25983799 (Version 1)
Quarter: 2025Q4

REPORT INFORMATION
  Report Type: Spontaneous
  Country: CN (occurrence: CN)
  Receive Date: 20251031
  Receipt Date: 20251031
  Transmission Date: 20260118
  Serious: Yes (Other)
  Sender: AMGEN
  Company Number: CN-AMGEN-CHNSP2025215522

PATIENT

DRUGS (4)
  1. PROLIA [Suspect]
     Active Substance: DENOSUMAB
     Indication: Osteoporosis postmenopausal
     Dosage: 60 MILLIGRAM, Q6MO
     Route: 058
  2. PROLIA [Suspect]
     Active Substance: DENOSUMAB
     Indication: Compression fracture
  3. TERIPARATIDE [Concomitant]
     Active Substance: TERIPARATIDE
     Indication: Osteoporosis postmenopausal
     Dosage: 20 MICROGRAM, QD
     Route: 058
  4. TERIPARATIDE [Concomitant]
     Active Substance: TERIPARATIDE
     Indication: Compression fracture

REACTIONS (5)
  - Spinal fracture [Unknown]
  - Vertigo [Unknown]
  - Headache [Unknown]
  - Fatigue [Unknown]
  - Diarrhoea [Unknown]
